FAERS Safety Report 6867226-9 (Version None)
Quarter: 2010Q3

REPORT INFORMATION
  Report Type: 
  Country: None (occurrence: None)
  Receive Date: 20100722
  Receipt Date: 20100716
  Transmission Date: 20110219
  Serious: Yes (Hospitalization)
  Sender: FDA-Public Use
  Company Number: B0666554A

PATIENT
  Sex: Female
  Weight: 45.4 kg

DRUGS (2)
  1. LAPATINIB [Suspect]
     Dosage: 1250MG PER DAY
     Route: 048
     Dates: start: 20100624, end: 20100715
  2. PACLITAXEL [Suspect]
     Route: 042
     Dates: start: 20100624, end: 20100708

REACTIONS (4)
  - CELLULITIS [None]
  - NEUTROPENIA [None]
  - OEDEMA PERIPHERAL [None]
  - PAIN IN EXTREMITY [None]
